FAERS Safety Report 10019534 (Version 1)
Quarter: 2014Q1

REPORT INFORMATION
  Report Type: Spontaneous
  Country: US (occurrence: US)
  Receive Date: 20140318
  Receipt Date: 20140318
  Transmission Date: 20141002
  Serious: Yes (Death)
  Sender: FDA-Public Use
  Company Number: US-TEVA-468580USA

PATIENT
  Sex: Male

DRUGS (2)
  1. FENTORA [Suspect]
     Indication: CROHN^S DISEASE
     Dosage: Q4-6H
     Route: 002
     Dates: start: 20120327, end: 201208
  2. STARGESIC [Concomitant]
     Indication: PAIN

REACTIONS (2)
  - Crohn^s disease [Fatal]
  - Off label use [Unknown]
